FAERS Safety Report 6736591-5 (Version None)
Quarter: 2010Q2

REPORT INFORMATION
  Report Type: 
  Country: None (occurrence: None)
  Receive Date: 20100521
  Receipt Date: 20100510
  Transmission Date: 20101027
  Serious: Yes (Hospitalization)
  Sender: FDA-Public Use
  Company Number: US-ELI_LILLY_AND_COMPANY-US201004002132

PATIENT
  Sex: Female

DRUGS (4)
  1. FORTEO [Suspect]
     Indication: OSTEOPOROSIS
     Dosage: 20 UG, DAILY (1/D)
     Dates: start: 20090806
  2. ASPIRIN [Concomitant]
     Dosage: 325 MG, DAILY (1/D)
  3. FUROSEMIDE [Concomitant]
     Dosage: 40 MG, DAILY (1/D)
     Dates: start: 20100301
  4. VITAMIN D [Concomitant]
     Dosage: 50000 U, WEEKLY (1/W)
     Dates: start: 20100301

REACTIONS (6)
  - DEHYDRATION [None]
  - GASTRITIS [None]
  - GASTROENTERITIS [None]
  - OESOPHAGEAL OBSTRUCTION [None]
  - OESOPHAGEAL ULCER [None]
  - PNEUMONIA ASPIRATION [None]
